FAERS Safety Report 10094142 (Version 2)
Quarter: 2014Q2

REPORT INFORMATION
  Report Type: Spontaneous
  Country: IT (occurrence: IT)
  Receive Date: 20140422
  Receipt Date: 20140619
  Transmission Date: 20141212
  Serious: Yes (Other)
  Sender: FDA-Public Use
  Company Number: IT-BRISTOL-MYERS SQUIBB COMPANY-20637310

PATIENT
  Age: 60 Year
  Sex: Female

DRUGS (6)
  1. ABILIFY [Suspect]
     Route: 048
     Dates: start: 20140328, end: 20140328
  2. RISPERDAL [Suspect]
     Route: 048
     Dates: start: 20140328, end: 20140328
  3. DEPAKINE CHRONO [Suspect]
     Route: 048
     Dates: start: 20140328, end: 20140328
  4. AKINETON [Suspect]
     Route: 048
     Dates: start: 20140328, end: 20140328
  5. CLOZAPINE [Suspect]
     Route: 048
     Dates: start: 20140328, end: 20140328
  6. LORAZEPAM [Suspect]
     Route: 048
     Dates: start: 20140328, end: 20140328

REACTIONS (2)
  - Medication error [Unknown]
  - Sopor [Unknown]
